FAERS Safety Report 6007228-8 (Version None)
Quarter: 2008Q4

REPORT INFORMATION
  Report Type: 
  Country: None (occurrence: None)
  Receive Date: 20081217
  Receipt Date: 20080211
  Transmission Date: 20090506
  Serious: No
  Sender: FDA-Public Use
  Company Number: US-ASTRAZENECA-2008UW02869

PATIENT
  Sex: Female

DRUGS (3)
  1. CRESTOR [Suspect]
     Route: 048
     Dates: start: 20070101
  2. LOOD PRESSURE MEDICINE [Concomitant]
     Indication: BLOOD PRESSURE
  3. NEXIUM [Concomitant]
     Indication: BURNING SENSATION
     Route: 048

REACTIONS (2)
  - BURNING SENSATION [None]
  - MUSCLE SPASMS [None]
